FAERS Safety Report 21888800 (Version 3)
Quarter: 2023Q1

REPORT INFORMATION
  Report Type: Report from Study
  Country: US (occurrence: None)
  Receive Date: 20230120
  Receipt Date: 20230321
  Transmission Date: 20230418
  Serious: Yes (Death)
  Sender: FDA-Public Use
  Company Number: US-ROCHE-3263596

PATIENT
  Sex: Female

DRUGS (10)
  1. BALOXAVIR MARBOXIL [Suspect]
     Active Substance: BALOXAVIR MARBOXIL
     Indication: Influenza
     Dosage: SHE RECEIVED MOST RECENT DOSE ON 17/DEC/2022.
     Route: 048
  2. OSELTAMIVIR [Suspect]
     Active Substance: OSELTAMIVIR
     Indication: Influenza
     Route: 065
  3. VANCOMYCIN [Concomitant]
     Active Substance: VANCOMYCIN
  4. AZTREONAM [Concomitant]
     Active Substance: AZTREONAM
  5. DOXYCYCLINE [Concomitant]
     Active Substance: DOXYCYCLINE
  6. ALBUTEROL [Concomitant]
     Active Substance: ALBUTEROL
  7. IPRATROPIUM [Concomitant]
     Active Substance: IPRATROPIUM
  8. PREDNISONE [Concomitant]
     Active Substance: PREDNISONE
  9. FUROSEMIDE [Concomitant]
     Active Substance: FUROSEMIDE
  10. APIXABAN [Concomitant]
     Active Substance: APIXABAN

REACTIONS (2)
  - Respiratory failure [Fatal]
  - Acute respiratory failure [Fatal]
